FAERS Safety Report 6834621-3 (Version None)
Quarter: 2010Q3

REPORT INFORMATION
  Report Type: 
  Country: None (occurrence: None)
  Receive Date: 20100712
  Receipt Date: 20070508
  Transmission Date: 20110219
  Serious: No
  Sender: FDA-Public Use
  Company Number: US-PFIZER INC-2007034099

PATIENT
  Sex: Female
  Weight: 54.545 kg

DRUGS (5)
  1. CHANTIX [Suspect]
     Indication: SMOKING CESSATION THERAPY
     Dates: start: 20070413
  2. EVISTA [Concomitant]
  3. SYNTHROID [Concomitant]
  4. CLONAZEPAM [Concomitant]
  5. TYLENOL (CAPLET) [Concomitant]

REACTIONS (8)
  - ABDOMINAL PAIN UPPER [None]
  - CONSTIPATION [None]
  - DECREASED APPETITE [None]
  - ERUCTATION [None]
  - FATIGUE [None]
  - HEADACHE [None]
  - INSOMNIA [None]
  - NAUSEA [None]
